FAERS Safety Report 5717310-8 (Version None)
Quarter: 2008Q2

REPORT INFORMATION
  Report Type: 
  Country: None (occurrence: None)
  Receive Date: 20080424
  Receipt Date: 20080424
  Transmission Date: 20081010
  Serious: Yes (Other)
  Sender: FDA-Public Use
  Company Number: None

PATIENT
  Sex: Male

DRUGS (6)
  1. REVLIMID [Suspect]
     Indication: MULTIPLE MYELOMA
     Dosage: 10MG DAILY PO  (DURATION: 1MONTH THEN 3 MONTHS)
     Route: 048
  2. REVLIMID [Suspect]
     Indication: MULTIPLE MYELOMA
     Dosage: 15MG DAILY PO
     Route: 048
  3. ASPIRIN [Concomitant]
  4. AMITRIPTLINE HCL [Concomitant]
  5. FENTANYL CITRATE [Concomitant]
  6. DEXAMETHASONE [Concomitant]

REACTIONS (5)
  - DIARRHOEA [None]
  - INFLUENZA LIKE ILLNESS [None]
  - NAUSEA [None]
  - NEUTROPENIA [None]
  - PAIN [None]
